FAERS Safety Report 7578899-X (Version None)
Quarter: 2011Q2

REPORT INFORMATION
  Report Type: 
  Country: None (occurrence: None)
  Receive Date: 20110628
  Receipt Date: 20110622
  Transmission Date: 20111010
  Serious: Yes (Hospitalization)
  Sender: FDA-Public Use
  Company Number: FR-ABBOTT-11P-056-0734632-00

PATIENT
  Sex: Male
  Weight: 40 kg

DRUGS (5)
  1. CEFOXITIN [Suspect]
     Indication: LUNG INFECTION
     Dosage: 3 IN 1 DAY, 225MG/KG/D
     Route: 048
     Dates: start: 20110520, end: 20110601
  2. ETHAMBUTOL [Concomitant]
     Indication: LUNG INFECTION
     Route: 048
     Dates: start: 20110520
  3. CLARITHROMYCIN [Suspect]
     Indication: LUNG INFECTION
     Route: 048
     Dates: start: 20110520
  4. ZYVOX [Suspect]
     Indication: LUNG INFECTION
     Dosage: 2 IN 1 DAY, 30MG/KG/D
     Route: 048
     Dates: start: 20110520, end: 20110528
  5. AMIKACIN [Concomitant]
     Indication: PRODUCT USED FOR UNKNOWN INDICATION
     Route: 048
     Dates: start: 20110520

REACTIONS (2)
  - THROMBOCYTOPENIA [None]
  - HAEMATURIA [None]
